FAERS Safety Report 20159189 (Version 1)
Quarter: 2021Q4

REPORT INFORMATION
  Report Type: Spontaneous
  Country: IN (occurrence: IN)
  Receive Date: 20211208
  Receipt Date: 20211208
  Transmission Date: 20220303
  Serious: Yes (Hospitalization, Other)
  Sender: FDA-Public Use
  Company Number: IN-ALKEM LABORATORIES LIMITED-IN-ALKEM-2021-05074

PATIENT
  Age: 25 Year
  Sex: Male

DRUGS (1)
  1. OLANZAPINE [Suspect]
     Active Substance: OLANZAPINE
     Indication: Psychotic disorder
     Dosage: 10 MILLIGRAM, QD
     Route: 065

REACTIONS (1)
  - Pancreatitis necrotising [Unknown]
